FAERS Safety Report 15196373 (Version 1)
Quarter: 2018Q3

REPORT INFORMATION
  Report Type: Report from Study
  Country: CA (occurrence: CA)
  Receive Date: 20180725
  Receipt Date: 20180725
  Transmission Date: 20181010
  Serious: Yes (Hospitalization)
  Sender: FDA-Public Use
  Company Number: CA-JNJFOC-20180617308

PATIENT
  Age: 83 Year
  Sex: Female

DRUGS (1)
  1. STELARA [Suspect]
     Active Substance: USTEKINUMAB
     Indication: COLITIS ULCERATIVE
     Dosage: STRENGTH = 130 MG
     Route: 042
     Dates: start: 20180525, end: 20180525

REACTIONS (6)
  - Balance disorder [Recovered/Resolved]
  - Product use in unapproved indication [Unknown]
  - Blood sodium decreased [Unknown]
  - Fall [Recovered/Resolved]
  - Constipation [Not Recovered/Not Resolved]
  - Off label use [Unknown]

NARRATIVE: CASE EVENT DATE: 20180525
